FAERS Safety Report 10688265 (Version 1)
Quarter: 2015Q1

REPORT INFORMATION
  Report Type: Spontaneous
  Country: US (occurrence: US)
  Receive Date: 20150102
  Receipt Date: 20150102
  Transmission Date: 20150720
  Serious: No
  Sender: FDA-Public Use
  Company Number: US-009507513-1412USA008620

PATIENT
  Sex: Female

DRUGS (1)
  1. LOTRIMIN ULTRA [Suspect]
     Active Substance: BUTENAFINE HYDROCHLORIDE
     Indication: PRURITUS
     Dosage: UNK, UNKNOWN
     Route: 061

REACTIONS (3)
  - Nail injury [Not Recovered/Not Resolved]
  - Erythema [Not Recovered/Not Resolved]
  - Nail disorder [Not Recovered/Not Resolved]
